FAERS Safety Report 21189783 (Version 1)
Quarter: 2022Q3

REPORT INFORMATION
  Report Type: Spontaneous
  Country: US (occurrence: None)
  Receive Date: 20220808
  Receipt Date: 20220808
  Transmission Date: 20221027
  Serious: No
  Sender: FDA-Public Use
  Company Number: None

PATIENT
  Age: 6 Month
  Sex: Male

DRUGS (1)
  1. SILDENAFIL [Suspect]
     Active Substance: SILDENAFIL
     Dosage: 7MG TID OTHER
     Dates: start: 20220808

REACTIONS (2)
  - Product container issue [None]
  - Wrong technique in product usage process [None]

NARRATIVE: CASE EVENT DATE: 20220808
